FAERS Safety Report 9265328 (Version 2)
Quarter: 2013Q2

REPORT INFORMATION
  Report Type: Spontaneous
  Country: TR (occurrence: TR)
  Receive Date: 20130501
  Receipt Date: 20130503
  Transmission Date: 20140414
  Serious: Yes (Other)
  Sender: FDA-Public Use
  Company Number: TR-UCBSA-084383

PATIENT
  Age: 50 Year
  Sex: Male

DRUGS (5)
  1. LEVETIRACETAM [Suspect]
     Dosage: 2000 MG/DAY
  2. LEVETIRACETAM [Suspect]
     Dosage: 500 MG/DAY
  3. BARBEXACLONE [Concomitant]
     Dosage: 200 MG/DAY
  4. VALPROATE [Concomitant]
     Dosage: 1000 MG/DAY
  5. VALPROATE [Concomitant]
     Dosage: 1500 MG/DAY

REACTIONS (5)
  - Grand mal convulsion [Recovered/Resolved]
  - White blood cell count decreased [Recovered/Resolved]
  - Weight increased [Unknown]
  - Memory impairment [Unknown]
  - Poor quality sleep [Recovering/Resolving]
